FAERS Safety Report 15884011 (Version 1)
Quarter: 2019Q1

REPORT INFORMATION
  Report Type: Spontaneous
  Country: IT (occurrence: IT)
  Receive Date: 20190129
  Receipt Date: 20190129
  Transmission Date: 20190417
  Serious: Yes (Hospitalization)
  Sender: FDA-Public Use
  Company Number: PHHY2017IT091434

PATIENT
  Age: 65 Year
  Sex: Male

DRUGS (2)
  1. ACETYLSALICYLIC ACID [Suspect]
     Active Substance: ASPIRIN
     Indication: PRODUCT USED FOR UNKNOWN INDICATION
     Route: 065
  2. KETOPROFEN. [Suspect]
     Active Substance: KETOPROFEN
     Indication: PROSTATITIS
     Dosage: 160 MG, UNK
     Route: 054

REACTIONS (3)
  - Contraindicated product administered [Unknown]
  - Lip oedema [Recovering/Resolving]
  - Drug hypersensitivity [Unknown]
